FAERS Safety Report 7599207-4 (Version None)
Quarter: 2011Q3

REPORT INFORMATION
  Report Type: 
  Country: None (occurrence: None)
  Receive Date: 20110711
  Receipt Date: 20110627
  Transmission Date: 20111222
  Serious: Yes (Hospitalization)
  Sender: FDA-Public Use
  Company Number: US-BAYER-2011-029547

PATIENT
  Age: 22 Year
  Sex: Female
  Weight: 61.224 kg

DRUGS (6)
  1. IBUPROFEN [Concomitant]
  2. ALBUTEROL SULFATE AUTOHALER [Concomitant]
  3. MOTRIN [Concomitant]
  4. PULMICORT [Concomitant]
  5. YAZ [Suspect]
     Indication: PRODUCT USED FOR UNKNOWN INDICATION
     Dosage: UNK
     Dates: start: 20020901, end: 20100201
  6. YASMIN [Suspect]
     Indication: PRODUCT USED FOR UNKNOWN INDICATION
     Dosage: UNK
     Dates: start: 20020901, end: 20100201

REACTIONS (5)
  - INJURY [None]
  - PAIN [None]
  - CHOLECYSTECTOMY [None]
  - CHOLELITHIASIS [None]
  - EMOTIONAL DISTRESS [None]
